FAERS Safety Report 18889605 (Version 1)
Quarter: 2021Q1

REPORT INFORMATION
  Report Type: Spontaneous
  Country: US (occurrence: US)
  Receive Date: 20210213
  Receipt Date: 20210213
  Transmission Date: 20210420
  Serious: No
  Sender: FDA-Public Use
  Company Number: US-TEVA-2021-US-1878313

PATIENT
  Sex: Female

DRUGS (1)
  1. HYDROXOCOBALAMIN ACETATE. [Suspect]
     Active Substance: HYDROXOCOBALAMIN ACETATE
     Dosage: 1000MCG/ML 30 ML
     Route: 065

REACTIONS (2)
  - Injection site pain [Unknown]
  - Product quality issue [Unknown]
